FAERS Safety Report 4902327-3 (Version None)
Quarter: 2006Q1

REPORT INFORMATION
  Report Type: 
  Country: None (occurrence: None)
  Receive Date: 20060203
  Receipt Date: 20060203
  Transmission Date: 20060701
  Serious: Yes (Hospitalization)
  Sender: FDA-Public Use
  Company Number: None

PATIENT
  Age: 50 Year
  Sex: Female
  Weight: 115 kg

DRUGS (2)
  1. GLEEVEC [Suspect]
     Indication: OVARIAN CANCER
     Dosage: 100MG, DAILY; ORAL
     Route: 048
     Dates: start: 20050818
  2. TAXOTERE [Suspect]
     Indication: OVARIAN CANCER
     Dosage: 62MGM, : INTRAVENOUS DRIP
     Route: 041
     Dates: start: 20050825

REACTIONS (2)
  - PLEURAL EFFUSION [None]
  - PULMONARY EMBOLISM [None]
